FAERS Safety Report 21403477 (Version 5)
Quarter: 2023Q2

REPORT INFORMATION
  Report Type: Spontaneous
  Country: JP (occurrence: JP)
  Receive Date: 20221003
  Receipt Date: 20230426
  Transmission Date: 20230722
  Serious: Yes (Other)
  Sender: FDA-Public Use
  Company Number: JP-ONO-2022JP026598

PATIENT
  Age: 71 Year
  Sex: Male

DRUGS (15)
  1. BRAFTOVI [Interacting]
     Active Substance: ENCORAFENIB
     Indication: Colon cancer
     Dosage: 300 MG
     Route: 048
     Dates: start: 20220415, end: 20220513
  2. BRAFTOVI [Interacting]
     Active Substance: ENCORAFENIB
     Indication: Colorectal cancer
     Dosage: 300 MG, EVERYDAY
     Route: 048
     Dates: start: 20220527, end: 20220909
  3. BRAFTOVI [Interacting]
     Active Substance: ENCORAFENIB
     Dosage: 225 MG, EVERYDAY
     Route: 048
     Dates: start: 20220917, end: 20221006
  4. BRAFTOVI [Interacting]
     Active Substance: ENCORAFENIB
     Dosage: 150 MG
     Route: 048
     Dates: start: 20221007
  5. MEKTOVI [Interacting]
     Active Substance: BINIMETINIB
     Indication: Colon cancer
     Dosage: 90 MG, EVERYDAY
     Route: 048
     Dates: start: 20220415, end: 20220513
  6. MEKTOVI [Interacting]
     Active Substance: BINIMETINIB
     Indication: Colorectal cancer
     Dosage: 60 MG, EVERYDAY
     Route: 048
     Dates: start: 20220527, end: 20220909
  7. MEKTOVI [Interacting]
     Active Substance: BINIMETINIB
     Dosage: 60 MG, EVERYDAY
     Route: 048
     Dates: start: 20220917
  8. FLUCONAZOLE [Interacting]
     Active Substance: FLUCONAZOLE
     Indication: Pneumonia cryptococcal
     Dosage: 200 MG
     Route: 065
     Dates: start: 20220729
  9. FLUCONAZOLE [Interacting]
     Active Substance: FLUCONAZOLE
     Indication: Cryptococcus test positive
  10. CETUXIMAB [Concomitant]
     Active Substance: CETUXIMAB
     Indication: Colon cancer
     Dosage: UNK
     Route: 065
     Dates: start: 20220415
  11. CETUXIMAB [Concomitant]
     Active Substance: CETUXIMAB
     Indication: Colorectal cancer
     Dosage: UNK
     Route: 065
     Dates: start: 20220917
  12. AZILSARTAN KAMEDOXOMIL [Concomitant]
     Active Substance: AZILSARTAN KAMEDOXOMIL
     Dosage: UNK
     Route: 065
  13. NEXIUM [Concomitant]
     Active Substance: ESOMEPRAZOLE MAGNESIUM
     Dosage: UNK
     Route: 065
  14. URSO [Concomitant]
     Active Substance: URSODIOL
     Dosage: UNK
     Route: 065
  15. MIYA-BM [Concomitant]
     Active Substance: CLOSTRIDIUM BUTYRICUM SPORES STRAIN M-55
     Dosage: UNK
     Route: 065

REACTIONS (8)
  - Pneumonia cryptococcal [Recovering/Resolving]
  - Blood creatine phosphokinase increased [Recovered/Resolved]
  - Lung opacity [Unknown]
  - Muscular weakness [Recovering/Resolving]
  - Fluid intake reduced [Recovering/Resolving]
  - Drug interaction [Unknown]
  - Cryptococcus test positive [Recovering/Resolving]
  - Blood creatinine increased [Not Recovered/Not Resolved]

NARRATIVE: CASE EVENT DATE: 20220513
